FAERS Safety Report 15698451 (Version 1)
Quarter: 2018Q4

REPORT INFORMATION
  Report Type: Spontaneous
  Country: FR (occurrence: FR)
  Receive Date: 20181207
  Receipt Date: 20181207
  Transmission Date: 20190205
  Serious: Yes (Hospitalization, Other)
  Sender: FDA-Public Use
  Company Number: FR-SUN PHARMACEUTICAL INDUSTRIES LTD-2018RR-192925

PATIENT
  Age: 17 Year
  Sex: Female
  Weight: 59.8 kg

DRUGS (12)
  1. OMEPRAZOLE. [Suspect]
     Active Substance: OMEPRAZOLE
     Indication: DRUG THERAPY
     Dosage: 20 MG,1X ; IN TOTAL
     Route: 048
     Dates: start: 20120723, end: 20120723
  2. PROFENID [Suspect]
     Active Substance: KETOPROFEN
     Dosage: 50 MG,UNK
     Route: 048
     Dates: start: 20120724, end: 20120724
  3. PROFENID [Suspect]
     Active Substance: KETOPROFEN
     Indication: DRUG THERAPY
     Dosage: 100 MG,BID
     Route: 048
     Dates: start: 20120723, end: 20120723
  4. MEFENAMIC ACID. [Suspect]
     Active Substance: MEFENAMIC ACID
     Indication: SELF-MEDICATION
     Dosage: UNK UNK,UNK ()
     Route: 048
     Dates: start: 20120724, end: 20120725
  5. CEFAZOLIN [Concomitant]
     Active Substance: CEFAZOLIN
     Indication: ANAESTHESIA
     Dosage: 2 G,UNK
     Route: 065
     Dates: start: 20120723, end: 20120723
  6. PRIMPERAN [Concomitant]
     Active Substance: METOCLOPRAMIDE HYDROCHLORIDE
     Indication: DRUG THERAPY
     Dosage: 10 MG,1X ; IN TOTAL
     Route: 065
     Dates: start: 20120723, end: 20120723
  7. SUFENTA [Concomitant]
     Active Substance: SUFENTANIL CITRATE
     Indication: ANAESTHESIA
     Dosage: DOSE: 20GAMMA ()
     Route: 065
     Dates: start: 20120723, end: 20120723
  8. IBUPROFEN. [Suspect]
     Active Substance: IBUPROFEN
     Indication: SELF-MEDICATION
     Dosage: UNK ()
     Route: 048
     Dates: start: 20120724, end: 20120725
  9. DIPRIVAN [Concomitant]
     Active Substance: PROPOFOL
     Indication: ANAESTHESIA
     Dosage: 200 MG,1X ; IN TOTAL
     Route: 065
     Dates: start: 20120723, end: 20120723
  10. HYPNOVEL [MIDAZOLAM] [Concomitant]
     Indication: ANAESTHESIA
     Dosage: 1.5 MG,1X ; IN TOTAL
     Route: 065
     Dates: start: 20120723, end: 20120723
  11. PERFALGAN [Concomitant]
     Active Substance: ACETAMINOPHEN
     Indication: DRUG THERAPY
     Dosage: 1 G,BID
     Route: 042
     Dates: start: 20120723, end: 20120723
  12. ATARAX [Concomitant]
     Active Substance: HYDROXYZINE HYDROCHLORIDE
     Indication: PREMEDICATION
     Dosage: 100 MG,1X ; IN TOTAL
     Route: 065
     Dates: start: 20120723, end: 20120723

REACTIONS (2)
  - Acute kidney injury [Recovered/Resolved]
  - Tubulointerstitial nephritis [Recovered/Resolved]

NARRATIVE: CASE EVENT DATE: 20120725
